FAERS Safety Report 11335909 (Version 1)
Quarter: 2015Q3

REPORT INFORMATION
  Report Type: Spontaneous
  Country: GB (occurrence: GB)
  Receive Date: 20150804
  Receipt Date: 20150804
  Transmission Date: 20151125
  Serious: Yes (Disabling)
  Sender: FDA-Public Use
  Company Number: GB-BAYER-2015-389769

PATIENT
  Age: 71 Year
  Sex: Male
  Weight: 137 kg

DRUGS (11)
  1. FUROSEMIDE. [Concomitant]
     Active Substance: FUROSEMIDE
     Dosage: 40 MG, UNK
     Route: 048
  2. ATENOLOL. [Concomitant]
     Active Substance: ATENOLOL
     Dosage: 25 MG, UNK
     Route: 048
  3. CO-DYDRAMOL [Concomitant]
     Active Substance: ACETAMINOPHEN\DIHYDROCODEINE
  4. ATORVASTATIN [Concomitant]
     Active Substance: ATORVASTATIN
     Dosage: 20 MG, QD
     Route: 048
  5. CANDESARTAN [Concomitant]
     Active Substance: CANDESARTAN
     Dosage: 10 MG, UNK
     Route: 048
  6. FLUOXIFAR [Concomitant]
     Dosage: 20 MG, UNK
     Route: 048
  7. ASPIRIN. [Concomitant]
     Active Substance: ASPIRIN
     Dosage: 75 MG, QD
     Route: 048
  8. DOXAZOSIN [Concomitant]
     Active Substance: DOXAZOSIN\DOXAZOSIN MESYLATE
     Dosage: 2 MG, QD
  9. FINASTERIDE. [Concomitant]
     Active Substance: FINASTERIDE
     Dosage: 5 MG, QD
     Route: 048
  10. CIPROFLOXACIN MONOHYDROCHLORIDE [Suspect]
     Active Substance: CIPROFLOXACIN
     Indication: URINARY TRACT INFECTION
     Dosage: 500 MG, QD
     Route: 048
     Dates: start: 20150709, end: 20150715
  11. BENDROFLUMETH [Concomitant]
     Dosage: 2.5 MG, QD
     Route: 048

REACTIONS (3)
  - Constipation [Not Recovered/Not Resolved]
  - Malaise [Not Recovered/Not Resolved]
  - Joint stiffness [Not Recovered/Not Resolved]

NARRATIVE: CASE EVENT DATE: 20150710
